FAERS Safety Report 21419086 (Version 1)
Quarter: 2022Q4

REPORT INFORMATION
  Report Type: Spontaneous
  Country: NL (occurrence: NL)
  Receive Date: 20221006
  Receipt Date: 20221006
  Transmission Date: 20230113
  Serious: Yes (Other)
  Sender: FDA-Public Use
  Company Number: NL-BAYER-2022P015632

PATIENT
  Age: 33 Year
  Sex: Female

DRUGS (1)
  1. MIRENA [Suspect]
     Active Substance: LEVONORGESTREL
     Indication: Heavy menstrual bleeding
     Dosage: 20?G/DAY
     Route: 015
     Dates: start: 20220203

REACTIONS (7)
  - Biliary colic [None]
  - Vaginal haemorrhage [Recovered/Resolved]
  - Hypomenorrhoea [None]
  - Vaginal haemorrhage [Recovering/Resolving]
  - Polymenorrhoea [None]
  - Abdominal pain [None]
  - Heavy menstrual bleeding [Not Recovered/Not Resolved]

NARRATIVE: CASE EVENT DATE: 20220201
